FAERS Safety Report 5383550-3 (Version None)
Quarter: 2007Q3

REPORT INFORMATION
  Report Type: 
  Country: None (occurrence: None)
  Receive Date: 20070706
  Receipt Date: 20070625
  Transmission Date: 20080115
  Serious: No
  Sender: FDA-Public Use
  Company Number: 2007-158491-NL

PATIENT
  Age: 55 Year
  Sex: Male

DRUGS (5)
  1. MIRTAZAPINE [Suspect]
     Indication: ANXIETY
     Dosage: 15 MG ORAL
     Route: 048
     Dates: start: 20060809, end: 20060810
  2. TERAZOSIN HYDROCHLORIDE [Suspect]
     Indication: HYPERTENSION
     Dosage: 2 MG ORAL
     Route: 048
     Dates: start: 20060809, end: 20060810
  3. PERINDOPRIL [Concomitant]
  4. NIFEDIPINE [Concomitant]
  5. BISOPROLOL FUMARATE [Concomitant]

REACTIONS (1)
  - PRIAPISM [None]
